FAERS Safety Report 11197906 (Version 2)
Quarter: 2015Q3

REPORT INFORMATION
  Report Type: Spontaneous
  Country: US (occurrence: US)
  Receive Date: 20150617
  Receipt Date: 20150917
  Transmission Date: 20151125
  Serious: No
  Sender: FDA-Public Use
  Company Number: US-GALDERMA-US15002945

PATIENT
  Age: 43 Year
  Sex: Female

DRUGS (8)
  1. MIRVASO [Suspect]
     Active Substance: BRIMONIDINE TARTRATE
     Dosage: 0.33%
     Route: 061
     Dates: start: 20150324
  2. OLUX FOAM [Concomitant]
     Route: 061
     Dates: start: 201503
  3. AMMONIUM LACTATE LOTION [Concomitant]
     Active Substance: AMMONIUM LACTATE
     Dosage: 12%
     Route: 061
     Dates: start: 201503
  4. ESCITALOPRAM OXALATE. [Concomitant]
     Active Substance: ESCITALOPRAM OXALATE
     Dosage: 5 MG
     Route: 048
  5. BENZOYL PEROXIDE. [Concomitant]
     Active Substance: BENZOYL PEROXIDE
     Dosage: 5 %
     Route: 061
     Dates: start: 201503
  6. MIRVASO [Suspect]
     Active Substance: BRIMONIDINE TARTRATE
     Indication: ROSACEA
     Dosage: 0.33%
     Route: 061
     Dates: start: 20150408, end: 20150416
  7. DERMATOLOGIST CREATED MOISTURIZER [Concomitant]
     Route: 061
  8. DERMATOLOGIST CREATED CLEANSER [Concomitant]
     Indication: THERAPEUTIC SKIN CARE TOPICAL
     Route: 061

REACTIONS (5)
  - Hot flush [Recovered/Resolved]
  - Flushing [Recovered/Resolved]
  - Erythema [Recovered/Resolved]
  - Feeling hot [Recovered/Resolved]
  - Drug ineffective [Recovered/Resolved]

NARRATIVE: CASE EVENT DATE: 201504
